FAERS Safety Report 19591843 (Version 2)
Quarter: 2021Q3

REPORT INFORMATION
  Report Type: Spontaneous
  Country: US (occurrence: US)
  Receive Date: 20210721
  Receipt Date: 20210723
  Transmission Date: 20211014
  Serious: No
  Sender: FDA-Public Use
  Company Number: NVSC2021US165505

PATIENT
  Age: 81 Year
  Sex: Female

DRUGS (1)
  1. VOLTAREN [Suspect]
     Active Substance: DICLOFENAC SODIUM
     Indication: ARTHRITIS
     Dosage: UNK
     Route: 065
     Dates: start: 20210715

REACTIONS (5)
  - Product use in unapproved indication [Unknown]
  - Flushing [Unknown]
  - Rash [Unknown]
  - Application site reaction [Unknown]
  - Rash macular [Unknown]

NARRATIVE: CASE EVENT DATE: 20210715
